FAERS Safety Report 7063439 (Version 3)
Quarter: 2016Q3

REPORT INFORMATION
  Report Type: Spontaneous
  Country: US (occurrence: US)
  Receive Date: 20090724
  Receipt Date: 20160929
  Transmission Date: 20161109
  Serious: Yes (Hospitalization, Other)
  Sender: FDA-Public Use
  Company Number: US-ASTRAZENECA-2009SE05166

PATIENT
  Age: 80 Year
  Sex: Female
  Weight: 81.6 kg

DRUGS (4)
  1. SYMBICORT [Suspect]
     Active Substance: BUDESONIDE\FORMOTEROL FUMARATE DIHYDRATE
     Indication: CHRONIC OBSTRUCTIVE PULMONARY DISEASE
     Dosage: 160/4.5 MCG,UNKNOWN
     Route: 055
  2. NEXIUM [Suspect]
     Active Substance: ESOMEPRAZOLE MAGNESIUM
     Indication: GASTROOESOPHAGEAL REFLUX DISEASE
     Dosage: DAILY
     Route: 048
  3. SYMBICORT [Suspect]
     Active Substance: BUDESONIDE\FORMOTEROL FUMARATE DIHYDRATE
     Indication: CHRONIC OBSTRUCTIVE PULMONARY DISEASE
     Dosage: 160/4.5 MCG, TWO TIMES A DAY
     Route: 055
     Dates: start: 2008
  4. XANAX [Concomitant]
     Active Substance: ALPRAZOLAM
     Dosage: AS REQUIRED
     Route: 048

REACTIONS (7)
  - Limb injury [Unknown]
  - Cerebrovascular accident [Unknown]
  - Malaise [Unknown]
  - Visual acuity reduced [Unknown]
  - Intentional product misuse [Not Recovered/Not Resolved]
  - Fall [Unknown]
  - Dyspnoea [Not Recovered/Not Resolved]
